FAERS Safety Report 12471956 (Version 1)
Quarter: 2016Q2

REPORT INFORMATION
  Report Type: Report from Study
  Country: US (occurrence: US)
  Receive Date: 20160616
  Receipt Date: 20160616
  Transmission Date: 20160815
  Serious: Yes (Other)
  Sender: FDA-Public Use
  Company Number: US-JNJFOC-20151104276

PATIENT
  Age: 74 Year
  Sex: Male

DRUGS (1)
  1. IMBRUVICA [Suspect]
     Active Substance: IBRUTINIB
     Indication: WALDENSTROM^S MACROGLOBULINAEMIA
     Route: 048
     Dates: start: 20151003

REACTIONS (9)
  - Fatigue [Unknown]
  - Parkinson^s disease [Not Recovered/Not Resolved]
  - Blood immunoglobulin M increased [Recovering/Resolving]
  - Drug dose omission [Recovered/Resolved]
  - Hypersomnia [Unknown]
  - Arthropathy [Not Recovered/Not Resolved]
  - Mental status changes [Recovering/Resolving]
  - Arthralgia [Not Recovered/Not Resolved]
  - Atrial fibrillation [Unknown]

NARRATIVE: CASE EVENT DATE: 20151009
